FAERS Safety Report 25681352 (Version 5)
Quarter: 2025Q4

REPORT INFORMATION
  Report Type: Spontaneous
  Country: US (occurrence: US)
  Receive Date: 20250814
  Receipt Date: 20251003
  Transmission Date: 20260117
  Serious: No
  Sender: LUPIN
  Company Number: US-LUPIN PHARMACEUTICALS INC.-2025-07126

PATIENT
  Weight: 136.96 kg

DRUGS (2)
  1. LEVOTHYROXINE SODIUM [Suspect]
     Active Substance: LEVOTHYROXINE SODIUM
     Indication: Autoimmune thyroiditis
     Dosage: UNK
     Route: 065
  2. LEVOTHYROXINE SODIUM [Suspect]
     Active Substance: LEVOTHYROXINE SODIUM
     Indication: Autoimmune thyroiditis
     Dosage: UNK, DOSE INCREASED
     Route: 065

REACTIONS (5)
  - Blood thyroid stimulating hormone increased [Unknown]
  - Hot flush [Unknown]
  - Hyperhidrosis [Unknown]
  - Product substitution issue [Unknown]
  - Drug ineffective [Unknown]
